FAERS Safety Report 14130420 (Version 3)
Quarter: 2018Q1

REPORT INFORMATION
  Report Type: Report from Study
  Country: US (occurrence: US)
  Receive Date: 20171026
  Receipt Date: 20180125
  Transmission Date: 20180508
  Serious: No
  Sender: FDA-Public Use
  Company Number: US-AMGEN-USASL2017112841

PATIENT
  Age: 77 Year
  Sex: Female

DRUGS (2)
  1. REPATHA [Suspect]
     Active Substance: EVOLOCUMAB
     Indication: HYPERCHOLESTEROLAEMIA
     Dosage: 140 MG, Q2WK
     Route: 065
  2. TYLENOL [Concomitant]
     Active Substance: ACETAMINOPHEN
     Dosage: UNK UNK, QD

REACTIONS (11)
  - Lethargy [Unknown]
  - Pain [Unknown]
  - Chills [Unknown]
  - Pruritus [Unknown]
  - Sensitivity to weather change [Unknown]
  - Malaise [Unknown]
  - Influenza like illness [Unknown]
  - Headache [Unknown]
  - Nausea [Unknown]
  - Arthropod bite [Unknown]
  - Dizziness [Unknown]

NARRATIVE: CASE EVENT DATE: 201707
